FAERS Safety Report 4422677-7 (Version None)
Quarter: 2004Q3

REPORT INFORMATION
  Report Type: 
  Country: None (occurrence: None)
  Receive Date: 20040713
  Receipt Date: 20040609
  Transmission Date: 20050211
  Serious: No
  Sender: FDA-Public Use
  Company Number: PHEH2004US06404

PATIENT
  Age: 70 Year
  Sex: Female

DRUGS (3)
  1. ELIDEL [Suspect]
     Dosage: ONCE/SINGLE, TOPICAL
     Route: 061
     Dates: start: 20040525, end: 20040525
  2. COZAAR [Concomitant]
  3. LIPITOR [Concomitant]

REACTIONS (2)
  - HYPERSENSITIVITY [None]
  - SKIN TEST POSITIVE [None]
